FAERS Safety Report 15037537 (Version 3)
Quarter: 2018Q3

REPORT INFORMATION
  Report Type: Report from Study
  Country: US (occurrence: US)
  Receive Date: 20180620
  Receipt Date: 20180823
  Transmission Date: 20181010
  Serious: Yes (Other)
  Sender: FDA-Public Use
  Company Number: US-JNJFOC-20180623102

PATIENT
  Age: 80 Year
  Sex: Female
  Weight: 68.95 kg

DRUGS (5)
  1. USTEKINUMAB [Suspect]
     Active Substance: USTEKINUMAB
     Indication: PSORIASIS
     Route: 058
     Dates: start: 201011, end: 201109
  2. ETANERCEPT [Concomitant]
     Active Substance: ETANERCEPT
     Route: 065
     Dates: start: 201110, end: 201110
  3. SECUKINUMAB. [Concomitant]
     Active Substance: SECUKINUMAB
     Route: 065
     Dates: start: 201506
  4. USTEKINUMAB [Suspect]
     Active Substance: USTEKINUMAB
     Indication: PSORIASIS
     Route: 058
     Dates: start: 201211, end: 201303
  5. ADALIMUMAB [Concomitant]
     Active Substance: ADALIMUMAB
     Route: 065
     Dates: start: 201304, end: 201311

REACTIONS (1)
  - Lung adenocarcinoma [Not Recovered/Not Resolved]

NARRATIVE: CASE EVENT DATE: 20180420
